FAERS Safety Report 25747446 (Version 1)
Quarter: 2025Q3

REPORT INFORMATION
  Report Type: Report from Study
  Country: US (occurrence: US)
  Receive Date: 20250901
  Receipt Date: 20250901
  Transmission Date: 20251021
  Serious: Yes (Other)
  Sender: RECORDATI
  Company Number: US-ORPHANEU-2025006031

PATIENT
  Sex: Female
  Weight: 22.676 kg

DRUGS (7)
  1. CYSTADANE [Suspect]
     Active Substance: BETAINE
     Indication: Methylenetetrahydrofolate reductase deficiency
     Route: 048
     Dates: start: 20191218
  2. CYSTADANE [Suspect]
     Active Substance: BETAINE
     Dosage: 2 GRAM, BID
     Route: 048
     Dates: start: 20250519
  3. HYDROXOCOBALAMIN ACETATE [Concomitant]
     Active Substance: HYDROXOCOBALAMIN ACETATE
     Indication: Product used for unknown indication
     Dosage: 0.5 MILLILITER, QOD, SOLUTION
     Route: 058
     Dates: start: 20240614
  4. LEUCOVORIN CALCIUM [Concomitant]
     Active Substance: LEUCOVORIN CALCIUM
     Indication: Product used for unknown indication
     Dosage: 15 MILLIGRAM, QD, TABLET 15 MG
     Route: 048
     Dates: start: 20171001
  5. LEVOCARNITINE [Concomitant]
     Active Substance: LEVOCARNITINE
     Indication: Product used for unknown indication
     Dosage: 2 MILLILITER, BID (200), SOLUTION, 1 GRAM/10
     Route: 048
     Dates: start: 20171001
  6. LIDOCAINE AND PRILOCAINE [Concomitant]
     Active Substance: LIDOCAINE\PRILOCAINE
     Indication: Product used for unknown indication
     Dates: start: 20171029
  7. VALTOCO [Concomitant]
     Active Substance: DIAZEPAM
     Indication: Product used for unknown indication
     Route: 045
     Dates: start: 20171001

REACTIONS (2)
  - Haematuria [Not Recovered/Not Resolved]
  - Dehydration [Not Recovered/Not Resolved]

NARRATIVE: CASE EVENT DATE: 20250101
